FAERS Safety Report 20539498 (Version 1)
Quarter: 2022Q1

REPORT INFORMATION
  Report Type: Spontaneous
  Country: CA (occurrence: CA)
  Receive Date: 20220302
  Receipt Date: 20220302
  Transmission Date: 20220423
  Serious: Yes (Other)
  Sender: FDA-Public Use
  Company Number: CA-JNJFOC-20210840892

PATIENT
  Age: 23 Year
  Sex: Female
  Weight: 57 kg

DRUGS (3)
  1. INFLIXIMAB [Suspect]
     Active Substance: INFLIXIMAB
     Indication: Colitis ulcerative
     Route: 042
  2. AZATHIOPRINE SODIUM [Concomitant]
     Active Substance: AZATHIOPRINE SODIUM
     Route: 065
  3. PREDNISONE [Concomitant]
     Active Substance: PREDNISONE
     Route: 065

REACTIONS (5)
  - Tonsillar haemorrhage [Unknown]
  - Tonsillar erythema [Unknown]
  - Tonsillar hypertrophy [Unknown]
  - Pharyngitis streptococcal [Unknown]
  - Tonsillitis [Unknown]
